FAERS Safety Report 4350157-6 (Version None)
Quarter: 2004Q2

REPORT INFORMATION
  Report Type: 
  Country: None (occurrence: None)
  Receive Date: 20040429
  Receipt Date: 20030708
  Transmission Date: 20050107
  Serious: Yes (Hospitalization)
  Sender: FDA-Public Use
  Company Number: PHHO2003FR08841

PATIENT
  Age: 50 Year
  Sex: Female
  Weight: 86 kg

DRUGS (5)
  1. RAD001 [Suspect]
     Indication: RENAL TRANSPLANT
     Dosage: 4 TABLETS / DAY
     Route: 048
     Dates: start: 20000819, end: 20020616
  2. NEORAL [Suspect]
     Indication: RENAL TRANSPLANT
     Dosage: NOT REPORTED
     Route: 048
  3. NEORAL [Suspect]
     Dosage: 50 MG, BID
     Route: 048
  4. PREDNISONE [Concomitant]
     Indication: RENAL TRANSPLANT
     Dosage: NOT REPORTED
     Route: 048
  5. LASIX [Concomitant]

REACTIONS (8)
  - BLOOD CREATININE INCREASED [None]
  - DRUG INTERACTION POTENTIATION [None]
  - FLUID RETENTION [None]
  - MICROCYTIC ANAEMIA [None]
  - NEPHROPATHY [None]
  - NEPHROPATHY TOXIC [None]
  - RENAL IMPAIRMENT [None]
  - SODIUM RETENTION [None]
